FAERS Safety Report 8571055-8 (Version None)
Quarter: 2012Q3

REPORT INFORMATION
  Report Type: 
  Country: None (occurrence: None)
  Receive Date: 20120806
  Receipt Date: 20120719
  Transmission Date: 20120928
  Serious: No
  Sender: FDA-Public Use
  Company Number: US-009507513-1207USA009153

PATIENT

DRUGS (4)
  1. REBETOL [Suspect]
  2. GS-9190 [Concomitant]
     Indication: HEPATITIS C
     Dosage: 30 MG, BID
  3. GS-5885 [Concomitant]
     Indication: HEPATITIS C
     Dosage: 90 MG, QD
  4. GS-9451 [Concomitant]
     Indication: HEPATITIS C
     Dosage: 200 MG, QD
     Route: 048

REACTIONS (2)
  - OVERDOSE [None]
  - NO ADVERSE EVENT [None]
